FAERS Safety Report 25404254 (Version 1)
Quarter: 2025Q2

REPORT INFORMATION
  Report Type: Spontaneous
  Country: CN (occurrence: CN)
  Receive Date: 20250606
  Receipt Date: 20250606
  Transmission Date: 20250717
  Serious: Yes (Hospitalization, Other)
  Sender: BIOGEN
  Company Number: CN-BBU-2025000219

PATIENT
  Age: 59 Year
  Sex: Female

DRUGS (16)
  1. TOCILIZUMAB [Suspect]
     Active Substance: TOCILIZUMAB
     Indication: Hyperferritinaemia
     Route: 041
     Dates: start: 2024, end: 2024
  2. METHYLPREDNISOLONE [Suspect]
     Active Substance: METHYLPREDNISOLONE
     Indication: Immunomodulatory therapy
     Dosage: FOR 5 DAYS
     Route: 041
     Dates: start: 20240530, end: 2024
  3. METHYLPREDNISOLONE [Suspect]
     Active Substance: METHYLPREDNISOLONE
     Indication: Immunomodulatory therapy
     Dates: start: 2024, end: 2024
  4. METHYLPREDNISOLONE [Suspect]
     Active Substance: METHYLPREDNISOLONE
     Indication: Immunomodulatory therapy
     Dosage: PULSE THERAPY, TAPERED TO 40 MG, 32 MG, 28 MG AND MAINTAINED AT 24 MG
     Dates: start: 2024, end: 2024
  5. METHYLPREDNISOLONE [Suspect]
     Active Substance: METHYLPREDNISOLONE
     Indication: Immunomodulatory therapy
     Dosage: MAINTENANCE THERAPY WAS TAPERED TO 22MG
     Route: 048
     Dates: start: 2024, end: 20240807
  6. TOFACITINIB [Suspect]
     Active Substance: TOFACITINIB
     Indication: Dermatomyositis
     Dates: start: 2024, end: 2024
  7. TACROLIMUS [Suspect]
     Active Substance: TACROLIMUS
     Indication: Dermatomyositis
     Dates: start: 2024, end: 2024
  8. TACROLIMUS [Suspect]
     Active Substance: TACROLIMUS
     Indication: Dermatomyositis
     Dates: start: 2024, end: 2024
  9. MYCOPHENOLATE MOFETIL [Suspect]
     Active Substance: MYCOPHENOLATE MOFETIL
     Indication: Dermatomyositis
     Dates: start: 2024, end: 2024
  10. Sulfamethoxazole complex [Concomitant]
     Indication: Antifungal prophylaxis
     Dates: start: 2024, end: 2024
  11. HUMAN IMMUNOGLOBULIN G [Concomitant]
     Active Substance: HUMAN IMMUNOGLOBULIN G
     Indication: Adjuvant therapy
     Dosage: 10 G ? 3 CONSECUTIVE DAYS
     Route: 041
     Dates: start: 2024
  12. FLUCONAZOLE [Concomitant]
     Active Substance: FLUCONAZOLE
     Indication: Antifungal treatment
     Dates: start: 2024, end: 2024
  13. VORICONAZOLE [Concomitant]
     Active Substance: VORICONAZOLE
     Indication: Antifungal treatment
     Dates: start: 2024, end: 2024
  14. MEROPENEM [Concomitant]
     Active Substance: MEROPENEM
     Dates: start: 2024, end: 2024
  15. GLUTATHIONE [Concomitant]
     Active Substance: GLUTATHIONE
     Dates: start: 2024, end: 2024
  16. SULPERAZONE [Concomitant]
     Active Substance: CEFOPERAZONE SODIUM\SULBACTAM SODIUM
     Dates: start: 2024, end: 2024

REACTIONS (10)
  - Coagulopathy [Recovered/Resolved]
  - Pseudomonas infection [Unknown]
  - Stenotrophomonas infection [Unknown]
  - Pulmonary nocardiosis [Unknown]
  - Aspergillus infection [Unknown]
  - Thrombocytopenia [Recovered/Resolved]
  - Cytomegalovirus infection reactivation [Unknown]
  - Sepsis [Unknown]
  - Respiratory tract infection [Unknown]
  - Off label use [Unknown]

NARRATIVE: CASE EVENT DATE: 20240101
